FAERS Safety Report 20144950 (Version 1)
Quarter: 2021Q4

REPORT INFORMATION
  Report Type: Spontaneous
  Country: US (occurrence: None)
  Receive Date: 20211202
  Receipt Date: 20211202
  Transmission Date: 20220303
  Serious: No
  Sender: FDA-Public Use
  Company Number: None

PATIENT
  Sex: Female
  Weight: 86.18 kg

DRUGS (19)
  1. PRALUENT [Suspect]
     Active Substance: ALIROCUMAB
     Indication: Hyperlipidaemia
     Dosage: OTHER FREQUENCY : Q2WEEKS;?
     Route: 058
     Dates: start: 20190613
  2. Meclizine HCI [Concomitant]
  3. VITAMIN D3 [Concomitant]
     Active Substance: CHOLECALCIFEROL
  4. PROTONIX [Concomitant]
     Active Substance: PANTOPRAZOLE SODIUM
  5. GABAPENTIN [Concomitant]
     Active Substance: GABAPENTIN
  6. Multivitamins [Concomitant]
  7. JANUVIA [Concomitant]
     Active Substance: SITAGLIPTIN PHOSPHATE
  8. Lantus SolorStar [Concomitant]
  9. ASPIRIN [Concomitant]
     Active Substance: ASPIRIN
  10. Omega-3-acid Ethyl Esters [Concomitant]
  11. METOPROLOL TARTRATE [Concomitant]
  12. CLOPIDOGREL BISULFATE [Concomitant]
  13. ASPIRIN EC [Concomitant]
  14. OMEPRAZOLE [Concomitant]
  15. HYDROCHLOROTHIAZIDE [Concomitant]
  16. IRBESARTAN [Concomitant]
     Active Substance: IRBESARTAN
  17. Pfizer-BioNTech COVID-19 Vaccine [Concomitant]
  18. DILTIAZEM [Concomitant]
  19. DOXAZOSIN MESYLATE [Concomitant]

REACTIONS (1)
  - Urinary tract infection [None]
